FAERS Safety Report 7229110-0 (Version None)
Quarter: 2011Q1

REPORT INFORMATION
  Report Type: 
  Country: None (occurrence: None)
  Receive Date: 20110117
  Receipt Date: 20110111
  Transmission Date: 20110831
  Serious: Yes (Hospitalization)
  Sender: FDA-Public Use
  Company Number: IT-JNJFOC-20110102441

PATIENT
  Age: 30 Year
  Sex: Female

DRUGS (1)
  1. LEVOXACIN [Suspect]
     Indication: SINUS DISORDER
     Route: 048

REACTIONS (3)
  - FACE OEDEMA [None]
  - ANAPHYLACTIC REACTION [None]
  - THROAT TIGHTNESS [None]
